FAERS Safety Report 8743038 (Version 5)
Quarter: 2012Q4

REPORT INFORMATION
  Report Type: 
  Country: US (occurrence: US)
  Receive Date: 20120824
  Receipt Date: 20121105
  Transmission Date: 20130627
  Serious: Yes (Death, Hospitalization, Other)
  Sender: FDA-Public Use
  Company Number: US-JNJFOC-20120810889

PATIENT
  Age: 66 None
  Sex: Female
  Weight: 76 kg

DRUGS (18)
  1. XARELTO [Suspect]
     Indication: CEREBROVASCULAR ACCIDENT PROPHYLAXIS
     Route: 048
     Dates: start: 20120712, end: 20120721
  2. XARELTO [Suspect]
     Indication: ATRIAL FIBRILLATION
     Route: 048
     Dates: start: 20120712, end: 20120721
  3. SOTALOL [Suspect]
     Indication: ARRHYTHMIA
  4. COUMADIN [Suspect]
     Indication: ATRIAL FIBRILLATION
  5. DIGOXIN [Concomitant]
  6. COREG [Concomitant]
  7. LASIX [Concomitant]
     Dosage: dose: 20 mg alternating with 40 mg daily
  8. SYNTHROID [Concomitant]
  9. LISINOPRIL [Concomitant]
  10. ALDACTONE [Concomitant]
  11. XANAX [Concomitant]
     Indication: ANXIETY
     Dosage: as needed
  12. SERTRALINE [Concomitant]
  13. MULTIPLE VITAMIN [Concomitant]
  14. REMERON [Concomitant]
  15. DULCOLAX [Concomitant]
  16. COLACE [Concomitant]
     Dosage: as needed
  17. CARAFATE [Concomitant]
  18. OMEPRAZOLE [Concomitant]

REACTIONS (7)
  - Death [Fatal]
  - Hepatic failure [Recovering/Resolving]
  - Duodenal ulcer [Unknown]
  - Gastritis [Unknown]
  - Coagulopathy [Unknown]
  - Renal failure [Unknown]
  - Failure to thrive [Unknown]
